FAERS Safety Report 23204512 (Version 1)
Quarter: 2023Q4

REPORT INFORMATION
  Report Type: Spontaneous
  Country: RU (occurrence: RU)
  Receive Date: 20231120
  Receipt Date: 20231120
  Transmission Date: 20240110
  Serious: Yes (Other)
  Sender: FDA-Public Use
  Company Number: RU-009507513-2311RUS005618

PATIENT
  Age: 72 Year
  Sex: Male

DRUGS (2)
  1. KEYTRUDA [Suspect]
     Active Substance: PEMBROLIZUMAB
     Indication: Renal cancer metastatic
     Dosage: 200 MILLIGRAM, Q3W
     Route: 042
     Dates: start: 20200803
  2. AXITINIB [Suspect]
     Active Substance: AXITINIB
     Indication: Renal cancer metastatic
     Dosage: 5 MILLIGRAM, 2 TIMES A DAY (BID)
     Route: 048
     Dates: start: 20200803

REACTIONS (5)
  - Pulmonary fibrosis [Unknown]
  - Hypertension [Unknown]
  - Diarrhoea [Unknown]
  - Fatigue [Unknown]
  - Therapy partial responder [Unknown]

NARRATIVE: CASE EVENT DATE: 20201101
